FAERS Safety Report 17140618 (Version 1)
Quarter: 2019Q4

REPORT INFORMATION
  Report Type: Spontaneous
  Country: DE (occurrence: DE)
  Receive Date: 20191211
  Receipt Date: 20191211
  Transmission Date: 20200122
  Serious: Yes (Other)
  Sender: FDA-Public Use
  Company Number: NVSC2019DE059344

PATIENT
  Age: 63 Year

DRUGS (5)
  1. NINTEDANIB [Suspect]
     Active Substance: NINTEDANIB
     Indication: NEOPLASM
     Dosage: UNK
     Route: 065
     Dates: start: 2019
  2. CISPLATIN. [Suspect]
     Active Substance: CISPLATIN
     Indication: NEOPLASM
     Dosage: UNK, CYCLIC (3 CYCLES)
     Route: 065
     Dates: start: 20190218, end: 20190329
  3. PEMETREXED DISODIUM [Suspect]
     Active Substance: PEMETREXED DISODIUM
     Indication: NEOPLASM
     Dosage: UNK, CYCLIC (3 CYCLES)
     Route: 065
     Dates: start: 20190218, end: 20190329
  4. PEMBROLIZUMAB. [Suspect]
     Active Substance: PEMBROLIZUMAB
     Indication: NEOPLASM
     Dosage: UNK, CYCLIC (3 CYCLES)
     Route: 065
     Dates: start: 20190218, end: 20190329
  5. DOCETAXEL. [Suspect]
     Active Substance: DOCETAXEL
     Indication: NEOPLASM
     Dosage: UNK
     Route: 065
     Dates: start: 2019

REACTIONS (2)
  - Decreased appetite [Unknown]
  - Malignant neoplasm progression [Unknown]

NARRATIVE: CASE EVENT DATE: 2019
